FAERS Safety Report 6315697-9 (Version None)
Quarter: 2009Q3

REPORT INFORMATION
  Report Type: 
  Country: None (occurrence: None)
  Receive Date: 20090818
  Receipt Date: 20090804
  Transmission Date: 20100115
  Serious: Yes (Hospitalization, Other)
  Sender: FDA-Public Use
  Company Number: A-NJ2009-26309

PATIENT
  Age: 65 Year
  Sex: Male
  Weight: 67.1 kg

DRUGS (10)
  1. TRACLEER [Suspect]
     Indication: PULMONARY HYPERTENSION
     Dosage: 62.5 MG, BID, ORAL
     Route: 048
     Dates: start: 20081101, end: 20090701
  2. ZOCOR [Concomitant]
  3. SYNTHROID [Concomitant]
  4. NORVASC [Concomitant]
  5. TRENTAL [Concomitant]
  6. PROTONIX [Concomitant]
  7. ASPIRIN [Concomitant]
  8. CENTRUM (MAGNESIUM, RIBOFLAVIN, MAGNESIUM OXIDE, FERROUS FUMARATE, MAN [Concomitant]
  9. CITALOPRAM (CITALOPRAM HYDROCHLORIDE) [Concomitant]
  10. LASIX [Concomitant]

REACTIONS (11)
  - ASPARTATE AMINOTRANSFERASE INCREASED [None]
  - BILIARY DILATATION [None]
  - BLOOD ALKALINE PHOSPHATASE INCREASED [None]
  - DEHYDRATION [None]
  - HEPATIC CIRRHOSIS [None]
  - HILAR LYMPHADENOPATHY [None]
  - LIVER ABSCESS [None]
  - LIVER FUNCTION TEST ABNORMAL [None]
  - LUNG NEOPLASM [None]
  - LYMPHADENOPATHY MEDIASTINAL [None]
  - VOMITING [None]
